FAERS Safety Report 26006523 (Version 1)
Quarter: 2025Q4

REPORT INFORMATION
  Report Type: Spontaneous
  Country: US (occurrence: US)
  Receive Date: 20251106
  Receipt Date: 20251106
  Transmission Date: 20260117
  Serious: Yes (Other)
  Sender: COOPERSURGICAL
  Company Number: US-COOPERSURGICAL, INC.-2025CPS007755

PATIENT
  Age: 20 Year
  Sex: Female
  Weight: 90.703 kg

DRUGS (2)
  1. PARAGARD T 380A [Suspect]
     Active Substance: COPPER
     Indication: Contraception
     Dosage: UNK
     Route: 015
     Dates: start: 20070801, end: 20180822
  2. LABETALOL [Concomitant]
     Active Substance: LABETALOL
     Dosage: UNK
     Dates: start: 201303

REACTIONS (15)
  - Surgery [Recovered/Resolved]
  - Device breakage [Recovered/Resolved]
  - Foreign body in reproductive tract [Recovered/Resolved]
  - Complication of device removal [Recovered/Resolved]
  - Embedded device [Recovered/Resolved]
  - Emotional distress [Unknown]
  - Procedural pain [Recovered/Resolved]
  - Complication associated with device [Recovered/Resolved]
  - Pelvic pain [Unknown]
  - Heavy menstrual bleeding [Unknown]
  - Muscle spasms [Unknown]
  - Abdominal distension [Unknown]
  - Device dislocation [Recovered/Resolved]
  - Device use issue [Unknown]
  - Off label use [Unknown]

NARRATIVE: CASE EVENT DATE: 20080801
